FAERS Safety Report 6618742-6 (Version None)
Quarter: 2010Q1

REPORT INFORMATION
  Report Type: 
  Country: None (occurrence: None)
  Receive Date: 20100308
  Receipt Date: 20100302
  Transmission Date: 20100710
  Serious: Yes (Other)
  Sender: FDA-Public Use
  Company Number: CHPA2010DE04247

PATIENT

DRUGS (1)
  1. SCOPOLAMINE [Suspect]
     Indication: NAUSEA
     Dosage: 0.5 DF, UNK
     Route: 062

REACTIONS (3)
  - CONVULSION [None]
  - OVERDOSE [None]
  - WRONG TECHNIQUE IN DRUG USAGE PROCESS [None]
